FAERS Safety Report 23758717 (Version 1)
Quarter: 2024Q2

REPORT INFORMATION
  Report Type: Spontaneous
  Country: US (occurrence: None)
  Receive Date: 20240418
  Receipt Date: 20240418
  Transmission Date: 20240716
  Serious: No
  Sender: FDA-Public Use
  Company Number: US-ROCHE-3352786

PATIENT
  Age: 70 Year
  Sex: Female
  Weight: 65.099 kg

DRUGS (19)
  1. AVASTIN [Suspect]
     Active Substance: BEVACIZUMAB
     Indication: Neoplasm malignant
     Route: 065
     Dates: start: 20220309
  2. LONSURF [Suspect]
     Active Substance: TIPIRACIL HYDROCHLORIDE\TRIFLURIDINE
     Indication: Colon cancer
     Dosage: 120 MG 60 MG, 1 IN 12 HOURS
     Route: 048
     Dates: start: 20220323
  3. LONSURF [Suspect]
     Active Substance: TIPIRACIL HYDROCHLORIDE\TRIFLURIDINE
     Indication: Colorectal cancer
     Dosage: 150 MG 75 MG, 1 IN 12 HOURS
     Route: 048
  4. LONSURF [Suspect]
     Active Substance: TIPIRACIL HYDROCHLORIDE\TRIFLURIDINE
     Dosage: 120 MG 60 MG, 1 IN 12 HOURS
     Route: 048
     Dates: start: 20220804
  5. FERROUS SULFATE [Concomitant]
     Active Substance: FERROUS SULFATE
  6. IRON [Concomitant]
     Active Substance: IRON
  7. LISINOPRIL [Concomitant]
     Active Substance: LISINOPRIL
  8. ONDANSETRON [Concomitant]
     Active Substance: ONDANSETRON
  9. POTASSIUM CHLORIDE [Concomitant]
     Active Substance: POTASSIUM CHLORIDE
  10. PREDNISONE [Concomitant]
     Active Substance: PREDNISONE
  11. CHOLECALCIFEROL [Concomitant]
     Active Substance: CHOLECALCIFEROL
  12. XARELTO [Concomitant]
     Active Substance: RIVAROXABAN
  13. ZINC GLUCONATE [Concomitant]
     Active Substance: ZINC GLUCONATE
  14. AZITHROMYCIN [Concomitant]
     Active Substance: AZITHROMYCIN
  15. GABAPENTIN [Concomitant]
     Active Substance: GABAPENTIN
  16. ZINC [Concomitant]
     Active Substance: PYRITHIONE ZINC\ZINC\ZINC CHLORIDE
  17. KLOR-CON [Concomitant]
     Active Substance: POTASSIUM CHLORIDE
  18. DRONABINOL [Concomitant]
     Active Substance: DRONABINOL
  19. XGEVA [Concomitant]
     Active Substance: DENOSUMAB

REACTIONS (14)
  - Sinusitis [Recovered/Resolved]
  - Headache [Unknown]
  - Diarrhoea [Not Recovered/Not Resolved]
  - Therapeutic response unexpected [Unknown]
  - Somnolence [Not Recovered/Not Resolved]
  - Nausea [Unknown]
  - Malaise [Unknown]
  - Fatigue [Unknown]
  - White blood cell count decreased [Unknown]
  - Tumour marker increased [Recovered/Resolved]
  - Decreased appetite [Unknown]
  - Inappropriate schedule of product administration [Unknown]
  - Muscle spasms [Not Recovered/Not Resolved]
  - Neutropenia [Recovered/Resolved]

NARRATIVE: CASE EVENT DATE: 20220601
